APPROVED DRUG PRODUCT: JENTADUETO
Active Ingredient: LINAGLIPTIN; METFORMIN HYDROCHLORIDE
Strength: 2.5MG;850MG
Dosage Form/Route: TABLET;ORAL
Application: N201281 | Product #002 | TE Code: AB
Applicant: BOEHRINGER INGELHEIM PHARMACEUTICALS INC
Approved: Jan 30, 2012 | RLD: Yes | RS: No | Type: RX

PATENTS:
Patent 8846695 | Expires: Jun 4, 2030
Patent 10022379 | Expires: Apr 2, 2029
Patent 12364700 | Expires: Jun 8, 2037
Patent 8673927 | Expires: May 4, 2027
Patent 11911388 | Expires: Apr 10, 2030
Patent 9155705 | Expires: May 21, 2030
Patent 10973827 | Expires: Apr 2, 2029
Patent 9415016 | Expires: Apr 2, 2029
Patent 8883805 | Expires: Nov 26, 2025
Patent 8673927*PED | Expires: Nov 4, 2027
Patent 8846695*PED | Expires: Dec 4, 2030
Patent 8883805*PED | Expires: May 26, 2026
Patent 9155705*PED | Expires: Nov 21, 2030
Patent 10022379*PED | Expires: Oct 2, 2029
Patent 9415016*PED | Expires: Oct 2, 2029
Patent 12364700*PED | Expires: Dec 8, 2037
Patent 10973827*PED | Expires: Oct 2, 2029

EXCLUSIVITY:
Code: PED | Date: Dec 20, 2026
Code: M-295 | Date: Jun 20, 2026